FAERS Safety Report 21618636 (Version 3)
Quarter: 2023Q2

REPORT INFORMATION
  Report Type: Spontaneous
  Country: US (occurrence: US)
  Receive Date: 20221119
  Receipt Date: 20230510
  Transmission Date: 20230722
  Serious: No
  Sender: FDA-Public Use
  Company Number: US-DSJP-DSU-2022-142157

PATIENT
  Sex: Female

DRUGS (1)
  1. ENHERTU [Suspect]
     Active Substance: FAM-TRASTUZUMAB DERUXTECAN-NXKI
     Indication: Breast cancer female
     Dosage: 290 MG, ONCE EVERY 3 WK THEN 1 WWEK OFF
     Route: 042
     Dates: start: 20220818

REACTIONS (6)
  - Dysphagia [Unknown]
  - Oropharyngeal discomfort [Unknown]
  - Dehydration [Unknown]
  - Asthenia [Unknown]
  - Laboratory test abnormal [Recovered/Resolved]
  - Vital functions abnormal [Recovered/Resolved]
